FAERS Safety Report 15641671 (Version 1)
Quarter: 2018Q4

REPORT INFORMATION
  Report Type: Spontaneous
  Country: US (occurrence: US)
  Receive Date: 20181121
  Receipt Date: 20181121
  Transmission Date: 20190205
  Serious: No
  Sender: FDA-Public Use
  Company Number: US-ACCORD-062938

PATIENT
  Sex: Female

DRUGS (1)
  1. HYDROCHLOROTHIAZIDE ACCORD [Suspect]
     Active Substance: HYDROCHLOROTHIAZIDE
     Indication: HYPERTENSION
     Route: 048
     Dates: start: 20180111

REACTIONS (3)
  - Muscle spasms [Unknown]
  - Malaise [Unknown]
  - Abdominal discomfort [Unknown]
